FAERS Safety Report 5821745-2 (Version None)
Quarter: 2008Q3

REPORT INFORMATION
  Report Type: 
  Country: None (occurrence: None)
  Receive Date: 20080724
  Receipt Date: 20080711
  Transmission Date: 20090109
  Serious: Yes (Death)
  Sender: FDA-Public Use
  Company Number: GB-BAUSCH-2008BL003058

PATIENT
  Age: 16 Week
  Sex: Female

DRUGS (6)
  1. DEXAMETHASONE [Suspect]
     Indication: ACUTE LYMPHOCYTIC LEUKAEMIA
     Route: 048
  2. ASPARAGINASE [Suspect]
     Indication: ACUTE LYMPHOCYTIC LEUKAEMIA
  3. CYCLOPHOSPHAMIDE [Suspect]
     Indication: ACUTE LYMPHOCYTIC LEUKAEMIA
  4. CYTARABINE [Suspect]
     Indication: ACUTE LYMPHOCYTIC LEUKAEMIA
  5. METHOTREXATE [Suspect]
     Indication: DRUG USE FOR UNKNOWN INDICATION
  6. VINCRISTINE SULFATE [Suspect]
     Indication: ACUTE LYMPHOCYTIC LEUKAEMIA

REACTIONS (13)
  - ADENOVIRAL HEPATITIS [None]
  - CELL-MEDIATED IMMUNE DEFICIENCY [None]
  - COAGULOPATHY [None]
  - ENTEROCOLITIS HAEMORRHAGIC [None]
  - FEBRILE NEUTROPENIA [None]
  - GASTRITIS [None]
  - HEPATIC FAILURE [None]
  - HEPATIC HAEMORRHAGE [None]
  - HEPATIC NECROSIS [None]
  - LYMPHOPENIA [None]
  - NO THERAPEUTIC RESPONSE [None]
  - PERIHEPATIC ABSCESS [None]
  - SUBARACHNOID HAEMORRHAGE [None]
